FAERS Safety Report 4766313-9 (Version None)
Quarter: 2005Q3

REPORT INFORMATION
  Report Type: 
  Country: None (occurrence: None)
  Receive Date: 20050906
  Receipt Date: 20050822
  Transmission Date: 20060218
  Serious: Yes (Other)
  Sender: FDA-Public Use
  Company Number: USA031255438

PATIENT
  Age: 50 Year
  Sex: Female

DRUGS (1)
  1. FORTEO [Suspect]
     Indication: BONE DISORDER
     Dosage: 20 UG/ DAY
     Dates: start: 20031225

REACTIONS (10)
  - ABDOMINAL MASS [None]
  - HEPATIC ENZYME INCREASED [None]
  - INJECTION SITE INDURATION [None]
  - INJECTION SITE IRRITATION [None]
  - INJECTION SITE RASH [None]
  - INJECTION SITE REACTION [None]
  - INJECTION SITE SWELLING [None]
  - LYMPHADENOPATHY [None]
  - NODULE [None]
  - PHARMACEUTICAL PRODUCT COMPLAINT [None]
